FAERS Safety Report 4376476-5 (Version None)
Quarter: 2004Q2

REPORT INFORMATION
  Report Type: 
  Country: None (occurrence: None)
  Receive Date: 20040608
  Receipt Date: 20040524
  Transmission Date: 20050107
  Serious: Yes (Other)
  Sender: FDA-Public Use
  Company Number: S04-USA-02584-01

PATIENT
  Age: 60 Year
  Sex: Female

DRUGS (4)
  1. LEXAPRO [Suspect]
     Indication: ANXIETY
     Dosage: 10 MG QD PO
     Route: 048
     Dates: start: 20040122
  2. LEXAPRO [Suspect]
     Indication: DEPRESSION
     Dosage: 10 MG QD PO
     Route: 048
     Dates: start: 20040122
  3. REMERON [Concomitant]
  4. KLONOPIN [Concomitant]

REACTIONS (7)
  - ABDOMINAL DISTENSION [None]
  - FLUID RETENTION [None]
  - SENSATION OF HEAVINESS [None]
  - TREATMENT NONCOMPLIANCE [None]
  - VARICOSE VEIN [None]
  - VEIN PAIN [None]
  - WEIGHT INCREASED [None]
